FAERS Safety Report 9614407 (Version 1)
Quarter: 2013Q4

REPORT INFORMATION
  Report Type: Spontaneous
  Country: US (occurrence: None)
  Receive Date: 20131007
  Receipt Date: 20131007
  Transmission Date: 20140711
  Serious: Yes (Hospitalization)
  Sender: FDA-Public Use
  Company Number: None

PATIENT
  Age: 69 Year
  Sex: Male
  Weight: 110.2 kg

DRUGS (1)
  1. ENOXAPARIN [Suspect]
     Indication: COLECTOMY
     Dosage: 40 ML, QD, SQ
     Route: 058
     Dates: start: 20130801, end: 20130803

REACTIONS (3)
  - Rash [None]
  - Cellulitis [None]
  - Blood glucose increased [None]
